FAERS Safety Report 4901589-6 (Version None)
Quarter: 2006Q1

REPORT INFORMATION
  Report Type: 
  Country: None (occurrence: None)
  Receive Date: 20060206
  Receipt Date: 20050505
  Transmission Date: 20060701
  Serious: No
  Sender: FDA-Public Use
  Company Number: US-BRISTOL-MYERS SQUIBB COMPANY-12964011

PATIENT
  Age: 58 Year
  Sex: Female

DRUGS (11)
  1. CARBOPLATIN [Suspect]
     Indication: OVARIAN CANCER
     Route: 042
     Dates: start: 20041025, end: 20050301
  2. TAXOL [Suspect]
     Indication: OVARIAN CANCER
     Route: 042
     Dates: start: 20041025, end: 20050627
  3. TYLENOL [Concomitant]
  4. HYDROCODONE + ACETAMINOPHEN [Concomitant]
  5. ZOFRAN [Concomitant]
     Indication: PREMEDICATION
     Route: 042
  6. COMPAZINE [Concomitant]
  7. DECADRON PHOSPHATE [Concomitant]
     Indication: PREMEDICATION
     Route: 042
  8. TAGAMET [Concomitant]
     Indication: PREMEDICATION
     Route: 042
  9. BENADRYL [Concomitant]
     Indication: PREMEDICATION
     Route: 042
  10. MULTI-VITAMIN [Concomitant]
  11. ZOFRAN [Concomitant]

REACTIONS (1)
  - ADVERSE DRUG REACTION [None]
